FAERS Safety Report 24568117 (Version 1)
Quarter: 2024Q4

REPORT INFORMATION
  Report Type: Other
  Country: DE (occurrence: DE)
  Receive Date: 20241031
  Receipt Date: 20241031
  Transmission Date: 20250115
  Serious: Yes (Death)
  Sender: ALVOGEN
  Company Number: DE-ALVOGEN-2024095767

PATIENT

DRUGS (2)
  1. MIDOMAFETAMINE [Suspect]
     Active Substance: MIDOMAFETAMINE
     Indication: Substance use
     Dosage: MDMA (3,4-METHYLENEDIOXYMETHAMPHETAMINE)
  2. MDMC [Suspect]
     Active Substance: MDMC
     Indication: Substance use
     Dosage: CATHINONE

REACTIONS (1)
  - Toxicity to various agents [Fatal]
